FAERS Safety Report 19012815 (Version 5)
Quarter: 2021Q3

REPORT INFORMATION
  Report Type: Report from Study
  Country: PL (occurrence: PL)
  Receive Date: 20210316
  Receipt Date: 20210724
  Transmission Date: 20211014
  Serious: Yes (Other)
  Sender: FDA-Public Use
  Company Number: PL-ROCHE-2786543

PATIENT
  Age: 59 Year
  Sex: Male
  Weight: 74 kg

DRUGS (6)
  1. CABOZANTINIB [Suspect]
     Active Substance: CABOZANTINIB
     Indication: RENAL CELL CARCINOMA
     Dosage: MOST RECENT DOSE OF CABOZANTINIB PRIOR TO AE AND SAE: 02/MAR/2021?ON 22/MAR/2021, HE RECEIVED THE EN
     Route: 048
     Dates: start: 20210302
  2. NEDAL [Concomitant]
     Active Substance: NEBIVOLOL HYDROCHLORIDE
     Indication: HYPERTENSION
     Route: 048
     Dates: start: 202011
  3. PANTOPRAZOLUM [Concomitant]
     Active Substance: PANTOPRAZOLE
     Dosage: PRN
     Route: 048
     Dates: start: 201407
  4. METOCLOPRAMIDE. [Concomitant]
     Active Substance: METOCLOPRAMIDE
     Indication: VOMITING
     Dosage: PRN
     Route: 048
     Dates: start: 201407
  5. ATEZOLIZUMAB. [Suspect]
     Active Substance: ATEZOLIZUMAB
     Indication: RENAL CELL CARCINOMA
     Dosage: ON 02/MAR/2021, THE PATIENT RECEIVED THE MOST RECENT DOSE 1200 MG OF ATEZOLIZUMAB PRIOR TO THE SERIO
     Route: 042
     Dates: start: 20210302
  6. EUTHYROX [Concomitant]
     Active Substance: LEVOTHYROXINE SODIUM
     Indication: HYPOTHYROIDISM
     Route: 048
     Dates: start: 2018

REACTIONS (2)
  - Erythema [Recovered/Resolved]
  - Rash [Recovered/Resolved]

NARRATIVE: CASE EVENT DATE: 20210302
